FAERS Safety Report 20941357 (Version 1)
Quarter: 2022Q2

REPORT INFORMATION
  Report Type: Report from Study
  Country: KR (occurrence: KR)
  Receive Date: 20220610
  Receipt Date: 20220610
  Transmission Date: 20220721
  Serious: Yes (Other)
  Sender: FDA-Public Use
  Company Number: KR-SUN PHARMACEUTICAL INDUSTRIES LTD-2022R1-340342

PATIENT
  Age: 36 Year
  Sex: Female

DRUGS (5)
  1. OXALIPLATIN [Suspect]
     Active Substance: OXALIPLATIN
     Indication: Chemotherapy
     Dosage: UNK/2 CYCLES
     Route: 065
  2. CISPLATIN [Suspect]
     Active Substance: CISPLATIN
     Indication: Chemotherapy
     Dosage: UNK/ 8 CYCLES
     Route: 065
  3. GEMCITABINE [Suspect]
     Active Substance: GEMCITABINE
     Indication: Chemotherapy
     Dosage: UNK/8 CYCLES
     Route: 065
  4. LEUCOVORIN [Suspect]
     Active Substance: LEUCOVORIN
     Indication: Chemotherapy
     Dosage: UNK/2 CYCLES
     Route: 065
  5. FLUOROURACIL [Suspect]
     Active Substance: FLUOROURACIL
     Indication: Chemotherapy
     Dosage: UNK/2 CYCLES
     Route: 065

REACTIONS (1)
  - Disease progression [Unknown]
